FAERS Safety Report 12637201 (Version 2)
Quarter: 2016Q4

REPORT INFORMATION
  Report Type: Spontaneous
  Country: US (occurrence: US)
  Receive Date: 20160809
  Receipt Date: 20161006
  Transmission Date: 20170207
  Serious: No
  Sender: FDA-Public Use
  Company Number: US-BEH-2016072106

PATIENT
  Age: 10 Year
  Sex: Male
  Weight: 46.71 kg

DRUGS (18)
  1. EPIPEN [Concomitant]
     Active Substance: EPINEPHRINE
  2. CLONAZEPAM. [Concomitant]
     Active Substance: CLONAZEPAM
  3. ZANTAC [Concomitant]
     Active Substance: RANITIDINE HYDROCHLORIDE
  4. IPRATROPIUM BROMIDE. [Concomitant]
     Active Substance: IPRATROPIUM BROMIDE
  5. FIORICET [Concomitant]
     Active Substance: ACETAMINOPHEN\BUTALBITAL\CAFFEINE
  6. AMOXICILLIN. [Concomitant]
     Active Substance: AMOXICILLIN
  7. ADVAIR HFA [Concomitant]
     Active Substance: FLUTICASONE PROPIONATE\SALMETEROL XINAFOATE
  8. ACETAMINOPHEN. [Concomitant]
     Active Substance: ACETAMINOPHEN
  9. DIPHENHYDRAMINE. [Concomitant]
     Active Substance: DIPHENHYDRAMINE
  10. HIZENTRA [Suspect]
     Active Substance: HUMAN IMMUNOGLOBULIN G
     Indication: SELECTIVE IGG SUBCLASS DEFICIENCY
     Dosage: 6 G, QW
     Route: 058
     Dates: start: 20160216
  11. SINGULAIR [Concomitant]
     Active Substance: MONTELUKAST SODIUM
  12. POLYETHYLENE GLYCOL [Concomitant]
     Active Substance: POLYETHYLENE GLYCOLS
  13. PROAIR HFA [Concomitant]
     Active Substance: ALBUTEROL SULFATE
  14. LIDOCAINE. [Concomitant]
     Active Substance: LIDOCAINE
  15. PATADAY [Concomitant]
     Active Substance: OLOPATADINE HYDROCHLORIDE
  16. OMEPRAZOLE. [Concomitant]
     Active Substance: OMEPRAZOLE
  17. TOPAMAX [Concomitant]
     Active Substance: TOPIRAMATE
  18. ADDERALL [Concomitant]
     Active Substance: AMPHETAMINE ASPARTATE\AMPHETAMINE SULFATE\DEXTROAMPHETAMINE SACCHARATE\DEXTROAMPHETAMINE SULFATE

REACTIONS (5)
  - Local swelling [Unknown]
  - Erythema [Unknown]
  - Nausea [Unknown]
  - Influenza like illness [Unknown]
  - Headache [Unknown]
